FAERS Safety Report 8807001 (Version 2)
Quarter: 2013Q1

REPORT INFORMATION
  Report Type: Report from Study
  Country: US (occurrence: US)
  Receive Date: 20120925
  Receipt Date: 20130205
  Transmission Date: 20140127
  Serious: Yes (Other)
  Sender: FDA-Public Use
  Company Number: US-BAYER-2012-096927

PATIENT
  Age: 63 Year
  Sex: Male

DRUGS (2)
  1. NEXAVAR [Suspect]
     Indication: RENAL CANCER
     Dosage: 200 MG, BID
     Route: 048
     Dates: start: 20120620, end: 201210
  2. VELCADE [Concomitant]
     Dosage: UNK
     Dates: start: 201207, end: 201210

REACTIONS (8)
  - Pharyngeal ulceration [None]
  - Aphasia [None]
  - Aphagia [None]
  - Urticaria [None]
  - Arthralgia [None]
  - Deafness [None]
  - Mucosal inflammation [None]
  - Myalgia [None]
